FAERS Safety Report 8621820-3 (Version None)
Quarter: 2012Q3

REPORT INFORMATION
  Report Type: 
  Country: None (occurrence: None)
  Receive Date: 20120821
  Receipt Date: 20120821
  Transmission Date: 20120928
  Serious: Yes (Other)
  Sender: FDA-Public Use
  Company Number: None

PATIENT
  Age: 53 Year
  Sex: Female
  Weight: 46.7205 kg

DRUGS (3)
  1. ALLEGRA [Suspect]
     Indication: RHINORRHOEA
     Dosage: 180MG 1 TTAB 24HRS PO
     Route: 048
     Dates: start: 20101201, end: 20120728
  2. ALLEGRA [Suspect]
     Indication: HYPERSENSITIVITY
     Dosage: 180MG 1 TTAB 24HRS PO
     Route: 048
     Dates: start: 20101201, end: 20120728
  3. ALLEGRA [Suspect]
     Indication: LACRIMATION INCREASED
     Dosage: 180MG 1 TTAB 24HRS PO
     Route: 048
     Dates: start: 20101201, end: 20120728

REACTIONS (11)
  - DEPRESSION [None]
  - MUSCLE RUPTURE [None]
  - ANXIETY [None]
  - PALPITATIONS [None]
  - AMNESIA [None]
  - PERSONALITY CHANGE [None]
  - DRY SKIN [None]
  - GAIT DISTURBANCE [None]
  - URINARY TRACT INFECTION [None]
  - POISONING [None]
  - PRODUCT LABEL ISSUE [None]
